FAERS Safety Report 18744629 (Version 1)
Quarter: 2021Q1

REPORT INFORMATION
  Report Type: Report from Study
  Country: US (occurrence: US)
  Receive Date: 20210115
  Receipt Date: 20210115
  Transmission Date: 20210419
  Serious: Yes (Death, Other)
  Sender: FDA-Public Use
  Company Number: US-ACADIA PHARMACEUTICALS INC.-ACA-2020-PIM-004158

PATIENT
  Age: 83 Year
  Sex: Female

DRUGS (17)
  1. NUPLAZID [Suspect]
     Active Substance: PIMAVANSERIN TARTRATE
     Indication: PARKINSON^S DISEASE
     Dosage: UNK UNK,
     Route: 065
     Dates: end: 20201105
  2. AMIODARONE [Concomitant]
     Active Substance: AMIODARONE
  3. TRAMADOL HCL [Concomitant]
     Active Substance: TRAMADOL HYDROCHLORIDE
  4. NUPLAZID [Suspect]
     Active Substance: PIMAVANSERIN TARTRATE
     Indication: HALLUCINATION
     Dosage: 34 MILLIGRAM, QD
     Route: 048
     Dates: start: 20201203, end: 20201226
  5. EZETIMIBE. [Concomitant]
     Active Substance: EZETIMIBE
  6. METOPROLOLTARTRAT [Concomitant]
  7. MIDODRINE [Concomitant]
     Active Substance: MIDODRINE
  8. PANTOPRAZOLE [Concomitant]
     Active Substance: PANTOPRAZOLE
  9. CLOBETASOL [Concomitant]
     Active Substance: CLOBETASOL
  10. CREON [Concomitant]
     Active Substance: PANCRELIPASE AMYLASE\PANCRELIPASE LIPASE\PANCRELIPASE PROTEASE
  11. FLUOROURACIL. [Concomitant]
     Active Substance: FLUOROURACIL
  12. ISOSORB DINIT [Concomitant]
  13. NITROGLYCERIN. [Concomitant]
     Active Substance: NITROGLYCERIN
  14. RISPERIDONE. [Concomitant]
     Active Substance: RISPERIDONE
  15. NUPLAZID [Suspect]
     Active Substance: PIMAVANSERIN TARTRATE
     Indication: DELUSION
     Dosage: 34 MILLIGRAM, QD
     Route: 048
     Dates: start: 202012
  16. CLOPIDOGREL [Concomitant]
     Active Substance: CLOPIDOGREL BISULFATE
  17. LEVOTHYROXIN [Concomitant]
     Active Substance: LEVOTHYROXINE

REACTIONS (3)
  - Product dose omission issue [Unknown]
  - Product dose omission issue [Unknown]
  - Death [Fatal]

NARRATIVE: CASE EVENT DATE: 20201105
